FAERS Safety Report 11720123 (Version 3)
Quarter: 2016Q3

REPORT INFORMATION
  Report Type: Spontaneous
  Country: US (occurrence: US)
  Receive Date: 20151110
  Receipt Date: 20160824
  Transmission Date: 20161109
  Serious: Yes (Other)
  Sender: FDA-Public Use
  Company Number: US-BAYER-2015-459193

PATIENT
  Sex: Female
  Weight: 90.7 kg

DRUGS (2)
  1. CIPRO [Suspect]
     Active Substance: CIPROFLOXACIN HYDROCHLORIDE
     Dosage: UNK
  2. CIPROFLOXACIN. [Suspect]
     Active Substance: CIPROFLOXACIN
     Indication: URINARY TRACT INFECTION
     Dosage: 500 MG, BID
     Dates: start: 20110526, end: 20110601

REACTIONS (8)
  - Pain [None]
  - Anxiety [None]
  - Breast pain [None]
  - Pain in extremity [None]
  - Injury [None]
  - Emotional distress [None]
  - Headache [None]
  - Neuropathy peripheral [None]
